FAERS Safety Report 18238327 (Version 1)
Quarter: 2020Q3

REPORT INFORMATION
  Report Type: Spontaneous
  Country: US (occurrence: US)
  Receive Date: 20200907
  Receipt Date: 20200907
  Transmission Date: 20201103
  Serious: No
  Sender: FDA-Public Use
  Company Number: US-SA-2020SA228636

PATIENT

DRUGS (5)
  1. LANTUS [Suspect]
     Active Substance: INSULIN GLARGINE
     Dosage: 20 IU, QD
     Route: 065
     Dates: start: 2020
  2. LANTUS [Suspect]
     Active Substance: INSULIN GLARGINE
     Dosage: 30 IU (ONCE OR TWICE)
  3. LANTUS [Suspect]
     Active Substance: INSULIN GLARGINE
     Dosage: TRY TO ADMINISTER 20 IU BUT IT STOPS AT 14 IU
     Route: 065
  4. LANTUS [Suspect]
     Active Substance: INSULIN GLARGINE
     Dosage: STOPPED AT 18 UNITS
     Route: 065
  5. METFORMIN [Concomitant]
     Active Substance: METFORMIN HYDROCHLORIDE
     Dosage: 1000 MG, BID
     Route: 065

REACTIONS (2)
  - Incorrect dose administered by device [Unknown]
  - Device breakage [Unknown]
